FAERS Safety Report 9187381 (Version 2)
Quarter: 2014Q1

REPORT INFORMATION
  Report Type: Report from Study
  Country: JP (occurrence: JP)
  Receive Date: 20130325
  Receipt Date: 20140319
  Transmission Date: 20141002
  Serious: Yes (Hospitalization, Other)
  Sender: FDA-Public Use
  Company Number: JP-ROCHE-1205371

PATIENT
  Age: 89 Year
  Sex: Male
  Weight: 68 kg

DRUGS (5)
  1. OMALIZUMAB [Suspect]
     Indication: ASTHMA
     Dosage: LAST DOSE PRIOR TO EVENT ON 05/JAN/2012
     Route: 058
     Dates: start: 20111110
  2. SYMBICORT [Concomitant]
  3. KIPRES [Concomitant]
  4. UNIPHYL [Concomitant]
  5. PREDONINE [Concomitant]
     Route: 065
     Dates: start: 20120412

REACTIONS (2)
  - Fall [Unknown]
  - Femoral neck fracture [Recovered/Resolved]
